FAERS Safety Report 23858329 (Version 3)
Quarter: 2025Q1

REPORT INFORMATION
  Report Type: Report from Study
  Country: BR (occurrence: BR)
  Receive Date: 20240515
  Receipt Date: 20250221
  Transmission Date: 20250408
  Serious: Yes (Other)
  Sender: GLAXOSMITHKLINE
  Company Number: BR-GLAXOSMITHKLINE-BR2023AMR126181

PATIENT

DRUGS (3)
  1. BELIMUMAB [Suspect]
     Active Substance: BELIMUMAB
     Indication: Systemic lupus erythematosus
     Dosage: 840 MG, Q4W ,7X120 MG
     Dates: start: 20230725
  2. BELIMUMAB [Suspect]
     Active Substance: BELIMUMAB
     Dosage: 400 MG, Q4W, FREEZE DIRED POWDER FOR INTRAVENOUS INFUSION, 5 X 120 MG
     Dates: start: 20230814
  3. BELIMUMAB [Suspect]
     Active Substance: BELIMUMAB
     Route: 042

REACTIONS (9)
  - Tuberculosis [Recovered/Resolved]
  - Toothache [Recovered/Resolved]
  - Dental operation [Unknown]
  - Illness [Unknown]
  - Oropharyngeal pain [Recovered/Resolved]
  - Pharyngeal inflammation [Recovered/Resolved]
  - Wisdom teeth removal [Not Recovered/Not Resolved]
  - Product dose omission issue [Unknown]
  - Intentional dose omission [Unknown]

NARRATIVE: CASE EVENT DATE: 20230913
